FAERS Safety Report 16392778 (Version 1)
Quarter: 2019Q2

REPORT INFORMATION
  Report Type: Spontaneous
  Country: IT (occurrence: IT)
  Receive Date: 20190605
  Receipt Date: 20190605
  Transmission Date: 20190711
  Serious: Yes (Other)
  Sender: FDA-Public Use
  Company Number: IT-ROCHE-2328865

PATIENT
  Age: 5 Year
  Sex: Female

DRUGS (5)
  1. BUSULFAN. [Concomitant]
     Active Substance: BUSULFAN
     Indication: IMMUNOSUPPRESSION
  2. MELPHALAN. [Concomitant]
     Active Substance: MELPHALAN
  3. RITUXIMAB. [Suspect]
     Active Substance: RITUXIMAB
     Indication: BURKITT^S LYMPHOMA
     Route: 065
  4. CYCLOPHOSPHAMIDE. [Suspect]
     Active Substance: CYCLOPHOSPHAMIDE
     Indication: BURKITT^S LYMPHOMA
     Route: 065
  5. ETOPOSIDE. [Suspect]
     Active Substance: ETOPOSIDE
     Indication: BURKITT^S LYMPHOMA
     Route: 065

REACTIONS (1)
  - Myelodysplastic syndrome [Unknown]
